FAERS Safety Report 6266400-2 (Version None)
Quarter: 2009Q3

REPORT INFORMATION
  Report Type: 
  Country: None (occurrence: None)
  Receive Date: 20090709
  Receipt Date: 20090529
  Transmission Date: 20100115
  Serious: Yes (Hospitalization)
  Sender: FDA-Public Use
  Company Number: DSA_33745_2009

PATIENT
  Age: 46 Year
  Sex: Female

DRUGS (2)
  1. ATIVAN [Suspect]
     Indication: DRUG USE FOR UNKNOWN INDICATION
     Dosage: DF
  2. MYLANTA /00036701/ (NOT SPECIFIED) [Suspect]
     Indication: DRUG USE FOR UNKNOWN INDICATION
     Dosage: DF

REACTIONS (1)
  - LOSS OF CONSCIOUSNESS [None]
